FAERS Safety Report 19627288 (Version 1)
Quarter: 2021Q3

REPORT INFORMATION
  Report Type: Spontaneous
  Country: US (occurrence: US)
  Receive Date: 20210729
  Receipt Date: 20210729
  Transmission Date: 20211014
  Serious: Yes (Life-Threatening)
  Sender: FDA-Public Use
  Company Number: None

PATIENT
  Age: 51 Year
  Sex: Male
  Weight: 112.5 kg

DRUGS (2)
  1. LIBTAYO [Suspect]
     Active Substance: CEMIPLIMAB-RWLC
     Indication: SKIN SQUAMOUS CELL CARCINOMA METASTATIC
     Dates: start: 20190916, end: 20210210
  2. HYDROCORTISONE 20MG [Concomitant]

REACTIONS (6)
  - Neuropathy peripheral [None]
  - Pain [None]
  - Quality of life decreased [None]
  - Sleep disorder [None]
  - Apathy [None]
  - Adrenal insufficiency [None]

NARRATIVE: CASE EVENT DATE: 20200101
